FAERS Safety Report 9201434 (Version 1)
Quarter: 2013Q2

REPORT INFORMATION
  Report Type: Spontaneous
  Country: BE (occurrence: BE)
  Receive Date: 20130401
  Receipt Date: 20130401
  Transmission Date: 20140414
  Serious: Yes (Hospitalization, Other)
  Sender: FDA-Public Use
  Company Number: BE-ABBOTT-13P-013-1069050-00

PATIENT
  Age: 54 Year
  Sex: Male

DRUGS (2)
  1. HUMIRA [Suspect]
     Indication: PSORIASIS
  2. LITHIUM [Concomitant]
     Indication: PRODUCT USED FOR UNKNOWN INDICATION

REACTIONS (7)
  - Encephalitis [Unknown]
  - Pneumonia [Unknown]
  - Sepsis [Unknown]
  - Dysarthria [Unknown]
  - Musculoskeletal disorder [Unknown]
  - Hepatitis [Unknown]
  - Psoriasis [Unknown]
